FAERS Safety Report 9020156 (Version 1)
Quarter: 2013Q1

REPORT INFORMATION
  Report Type: Spontaneous
  Country: US (occurrence: US)
  Receive Date: 20130119
  Receipt Date: 20130119
  Transmission Date: 20140127
  Serious: No
  Sender: FDA-Public Use
  Company Number: US-ALLERGAN-1210398US

PATIENT
  Sex: Female

DRUGS (4)
  1. BOTOX? [Suspect]
     Indication: MUSCLE SPASTICITY
     Dosage: 780 UNITS, SINGLE
     Route: 030
     Dates: start: 20120509, end: 20120509
  2. BOTOX? [Suspect]
     Dosage: 120 UNITS, SINGLE
     Route: 030
     Dates: start: 20120509, end: 20120509
  3. BACLOFEN [Concomitant]
     Indication: MUSCLE SPASTICITY
  4. LEXAPRO [Concomitant]
     Indication: PRODUCT USED FOR UNKNOWN INDICATION

REACTIONS (3)
  - Off label use [Unknown]
  - Overdose [Unknown]
  - Drug ineffective [Unknown]
